FAERS Safety Report 9445692 (Version 2)
Quarter: 2013Q3

REPORT INFORMATION
  Report Type: Spontaneous
  Country: US (occurrence: US)
  Receive Date: 20130807
  Receipt Date: 20130829
  Transmission Date: 20140515
  Serious: Yes (Other)
  Sender: FDA-Public Use
  Company Number: US-PFIZER INC-2013229124

PATIENT
  Age: 84 Year
  Sex: Female
  Weight: 77.1 kg

DRUGS (3)
  1. LIPITOR [Suspect]
     Indication: BLOOD CHOLESTEROL ABNORMAL
     Dosage: 10 MG, TWO TIMES A DAY
     Dates: end: 20130805
  2. AGGRENOX [Concomitant]
     Indication: CEREBROVASCULAR ACCIDENT
     Dosage: [ACETYLSALICYLIC ACID  25 MG]/[DIPYRIDAMOLE 200MG], TWO TIMES A DAY
  3. SYNTHROID [Concomitant]
     Indication: THYROID DISORDER
     Dosage: 150 UG, DAILY

REACTIONS (1)
  - Glucose tolerance impaired [Unknown]
